FAERS Safety Report 7875974-7 (Version None)
Quarter: 2011Q4

REPORT INFORMATION
  Report Type: 
  Country: None (occurrence: None)
  Receive Date: 20111031
  Receipt Date: 20111024
  Transmission Date: 20120403
  Serious: Yes (Other)
  Sender: FDA-Public Use
  Company Number: HR-TEVA-306717ISR

PATIENT
  Age: 57 Year
  Sex: Female

DRUGS (2)
  1. CIPROFLOXACIN [Suspect]
     Indication: PYELONEPHRITIS
  2. CIPROFLOXACIN [Suspect]
     Indication: NEPHROLITHIASIS

REACTIONS (3)
  - RENAL DISORDER [None]
  - HEPATIC ENZYME ABNORMAL [None]
  - DRUG RASH WITH EOSINOPHILIA AND SYSTEMIC SYMPTOMS [None]
